FAERS Safety Report 17727171 (Version 1)
Quarter: 2020Q2

REPORT INFORMATION
  Report Type: Spontaneous
  Country: US (occurrence: US)
  Receive Date: 20200430
  Receipt Date: 20200430
  Transmission Date: 20200714
  Serious: Yes (Other)
  Sender: FDA-Public Use
  Company Number: US-ASTRAZENECA-2020SE56331

PATIENT
  Sex: Female

DRUGS (1)
  1. BRILINTA [Suspect]
     Active Substance: TICAGRELOR
     Dosage: TWO SCHEDULED DOSES OF IT AND IN THE NIGHT
     Route: 048

REACTIONS (2)
  - Dyspnoea [Unknown]
  - Asthenia [Unknown]
